FAERS Safety Report 8369768 (Version 2)
Quarter: 2013Q1

REPORT INFORMATION
  Report Type: Report from Study
  Country: US (occurrence: US)
  Receive Date: 20120128
  Receipt Date: 20130131
  Transmission Date: 20140127
  Serious: No
  Sender: FDA-Public Use
  Company Number: US-ABBOTT-11P-163-0834586-00

PATIENT
  Age: 63 Year
  Sex: Male

DRUGS (17)
  1. FLONASE [Concomitant]
     Indication: HYPERSENSITIVITY
     Dosage: 2 PUFF PER NOSTRIL BID
     Route: 045
  2. MORPHINE SULFATE [Concomitant]
     Indication: ARTHRALGIA
     Dosage: 30 MG - ONE EVERY 12 HOURS
  3. COLACE [Concomitant]
     Indication: CONSTIPATION
     Dosage: ONE DAILY
  4. VITAMINS NOS [Concomitant]
     Indication: VITAMIN SUPPLEMENTATION
     Dosage: ONE DAILY
  5. HUMIRA 40 MG/0.8 ML PEN [Suspect]
     Indication: RHEUMATOID ARTHRITIS
     Dates: start: 201006
  6. METOPROLOL [Concomitant]
     Indication: HYPERTENSION
     Dosage: 100 MG BID
  7. AMANTADINE [Concomitant]
     Indication: DEMENTIA
     Dosage: 100 MG BID
  8. FENOFIBRATE [Concomitant]
     Indication: BLOOD CHOLESTEROL INCREASED
     Dosage: 134 MG DAILY
  9. CLARITIN [Concomitant]
     Indication: SEASONAL ALLERGY
     Dosage: 10 MG DAILY
  10. LIPITOR [Concomitant]
     Indication: BLOOD CHOLESTEROL INCREASED
     Dosage: 40 MG DAILY
  11. ARICEPT [Concomitant]
     Indication: DEMENTIA
     Dosage: 10 MG DAILY
  12. NEURONTIN [Concomitant]
     Indication: RESTLESS LEGS SYNDROME
     Dosage: 30 MG DAILY
  13. NEURONTIN [Concomitant]
     Indication: ANXIETY
  14. LEFLUNOMIDE [Concomitant]
     Indication: RHEUMATOID ARTHRITIS
     Dosage: 20 MG BID
  15. NIASPAN [Concomitant]
     Indication: ARTHRITIS
     Dosage: 1000 MG; UNREPORTED FREQUENCY
  16. VESICARE [Concomitant]
     Indication: PROSTATIC DISORDER
     Dosage: 10 MG DAILY
  17. HYDROCODONE BITARTRATE AND ACETAMINOPHEN [Concomitant]
     Indication: ARTHRALGIA
     Dosage: 7.5MG/325MG BID

REACTIONS (5)
  - Synovial cyst [Not Recovered/Not Resolved]
  - Cyst [Unknown]
  - Rash [Not Recovered/Not Resolved]
  - Rash [Not Recovered/Not Resolved]
  - Pain [Unknown]
